FAERS Safety Report 11193859 (Version 3)
Quarter: 2015Q3

REPORT INFORMATION
  Report Type: Spontaneous
  Country: US (occurrence: US)
  Receive Date: 20150616
  Receipt Date: 20150828
  Transmission Date: 20151125
  Serious: No
  Sender: FDA-Public Use
  Company Number: US-PFIZER INC-2015196448

PATIENT
  Age: 76 Year
  Sex: Male
  Weight: 78 kg

DRUGS (1)
  1. SUTENT [Suspect]
     Active Substance: SUNITINIB MALATE
     Indication: METASTASES TO KIDNEY
     Dosage: 50 MG, DAILY
     Route: 048
     Dates: start: 20150601

REACTIONS (8)
  - Diarrhoea [Unknown]
  - Dysgeusia [Unknown]
  - Memory impairment [Unknown]
  - Oral pain [Unknown]
  - Joint swelling [Unknown]
  - Decreased appetite [Unknown]
  - Contusion [Unknown]
  - Arthralgia [Unknown]
